FAERS Safety Report 5580558-X (Version None)
Quarter: 2007Q4

REPORT INFORMATION
  Report Type: 
  Country: None (occurrence: None)
  Receive Date: 20071231
  Receipt Date: 20071231
  Transmission Date: 20080405
  Serious: Yes (Hospitalization)
  Sender: FDA-Public Use
  Company Number: None

PATIENT
  Age: 74 Year
  Sex: Male

DRUGS (2)
  1. VARENICLINE [Suspect]
     Dosage: 1MG BID PO
     Route: 048
     Dates: start: 20071211, end: 20071226
  2. DIAZEPAM [Suspect]
     Dosage: 10MG  TID  PO
     Route: 048
     Dates: start: 20001201

REACTIONS (5)
  - CONFUSIONAL STATE [None]
  - DELUSION [None]
  - DRUG DOSE OMISSION [None]
  - HALLUCINATION [None]
  - MENTAL STATUS CHANGES [None]
